FAERS Safety Report 21941728 (Version 1)
Quarter: 2023Q1

REPORT INFORMATION
  Report Type: Report from Study
  Country: US (occurrence: US)
  Receive Date: 20230202
  Receipt Date: 20230202
  Transmission Date: 20230417
  Serious: No
  Sender: FDA-Public Use
  Company Number: US-EXELIXIS-CABO-22055768

PATIENT
  Age: 61 Year
  Sex: Female
  Weight: 84.626 kg

DRUGS (1)
  1. CABOMETYX [Suspect]
     Active Substance: CABOZANTINIB S-MALATE
     Indication: Renal cancer
     Dosage: 40 MG, QD
     Route: 048
     Dates: start: 20220819, end: 202210

REACTIONS (11)
  - Body tinea [Recovered/Resolved]
  - Neuropathy peripheral [Unknown]
  - Thyroid function test abnormal [Unknown]
  - Skin fissures [Recovering/Resolving]
  - Oral pain [Not Recovered/Not Resolved]
  - Blood pressure fluctuation [Unknown]
  - Dizziness [Unknown]
  - Hepatic enzyme increased [Unknown]
  - Dry skin [Recovering/Resolving]
  - Weight decreased [Unknown]
  - COVID-19 [Unknown]

NARRATIVE: CASE EVENT DATE: 20220901
